FAERS Safety Report 8533163-7 (Version None)
Quarter: 2012Q3

REPORT INFORMATION
  Report Type: 
  Country: None (occurrence: None)
  Receive Date: 20120724
  Receipt Date: 20120717
  Transmission Date: 20120928
  Serious: Yes (Hospitalization)
  Sender: FDA-Public Use
  Company Number: JP-B.I. PHARMACEUTICALS,INC./RIDGEFIELD-2012-BP-06780NB

PATIENT
  Sex: Female
  Weight: 44 kg

DRUGS (5)
  1. PLATIBIT [Concomitant]
     Route: 065
  2. PRADAXA [Suspect]
     Indication: THROMBOSIS PROPHYLAXIS
     Dosage: 220 MG
     Route: 048
     Dates: start: 20111023
  3. MUCOSTA [Concomitant]
     Dosage: 300 MG
     Route: 065
  4. MICARDIS [Concomitant]
     Dosage: 40 MG
     Route: 065
  5. LIPITOR [Concomitant]
     Dosage: 20 MG
     Route: 065

REACTIONS (1)
  - LUNG DISORDER [None]
